FAERS Safety Report 17683571 (Version 1)
Quarter: 2020Q2

REPORT INFORMATION
  Report Type: Spontaneous
  Country: US (occurrence: US)
  Receive Date: 20200420
  Receipt Date: 20200420
  Transmission Date: 20200714
  Serious: Yes (Hospitalization, Other)
  Sender: FDA-Public Use
  Company Number: US-ABBVIE-20K-163-3366047-00

PATIENT
  Sex: Female

DRUGS (2)
  1. HUMIRA [Suspect]
     Active Substance: ADALIMUMAB
     Indication: CROHN^S DISEASE
     Route: 058
  2. ENTYVIO [Suspect]
     Active Substance: VEDOLIZUMAB
     Indication: CROHN^S DISEASE
     Route: 065

REACTIONS (12)
  - Fistula of small intestine [Unknown]
  - Abscess intestinal [Unknown]
  - Frustration tolerance decreased [Unknown]
  - Drug specific antibody present [Unknown]
  - Hypophagia [Not Recovered/Not Resolved]
  - Appendicectomy [Unknown]
  - Live birth [Unknown]
  - Intestinal resection [Unknown]
  - Feeling of despair [Unknown]
  - Fluid intake reduced [Not Recovered/Not Resolved]
  - Premature baby [Unknown]
  - Maternal exposure during pregnancy [Unknown]
